FAERS Safety Report 11445612 (Version 1)
Quarter: 2015Q3

REPORT INFORMATION
  Report Type: Spontaneous
  Country: None (occurrence: None)
  Receive Date: 20150901
  Receipt Date: 20150901
  Transmission Date: 20151125
  Serious: No
  Sender: FDA-Public Use
  Company Number: None

PATIENT
  Age: 40 Year
  Sex: Female

DRUGS (1)
  1. MONISTAT 3 [Suspect]
     Active Substance: MICONAZOLE NITRATE

REACTIONS (4)
  - Pruritus [None]
  - Vulvovaginal erythema [None]
  - Burning sensation [None]
  - Vulvovaginal swelling [None]

NARRATIVE: CASE EVENT DATE: 20150828
